FAERS Safety Report 5234660-2 (Version None)
Quarter: 2007Q1

REPORT INFORMATION
  Report Type: 
  Country: None (occurrence: None)
  Receive Date: 20070209
  Receipt Date: 20070129
  Transmission Date: 20070707
  Serious: Yes (Other)
  Sender: FDA-Public Use
  Company Number: US-ELI_LILLY_AND_COMPANY-US200701006243

PATIENT
  Age: 58 Year
  Sex: Male

DRUGS (16)
  1. HUMATROPE [Suspect]
     Indication: HIV WASTING SYNDROME
     Dosage: .4 MG, DAILY (1/D)
     Dates: start: 20061228, end: 20070112
  2. SYNTHROID [Concomitant]
  3. TOPRAL [Concomitant]
  4. PREDNISONE [Concomitant]
  5. RESTORIL [Concomitant]
  6. ATIVAN [Concomitant]
  7. CLONOPIN [Concomitant]
  8. PROPECIA [Concomitant]
  9. ATAZANAVIR [Concomitant]
  10. ENDODAN [Concomitant]
  11. VALTREX [Concomitant]
  12. TRUVADA [Concomitant]
  13. PROVIGIL [Concomitant]
  14. FOLIC ACID [Concomitant]
  15. REMERON [Concomitant]
  16. MAMMOL [Concomitant]

REACTIONS (1)
  - PANCREATIC CARCINOMA [None]
